FAERS Safety Report 4699314-X (Version None)
Quarter: 2005Q2

REPORT INFORMATION
  Report Type: 
  Country: None (occurrence: None)
  Receive Date: 20050624
  Receipt Date: 20050426
  Transmission Date: 20051028
  Serious: Yes (Hospitalization)
  Sender: FDA-Public Use
  Company Number: JP-GLAXOSMITHKLINE-B0379307A

PATIENT
  Age: 57 Year
  Sex: Male
  Weight: 77 kg

DRUGS (8)
  1. PAXIL [Suspect]
     Indication: ANXIETY DISORDER
     Dosage: 20MG TWICE PER DAY
     Route: 048
     Dates: start: 20050221, end: 20050501
  2. MICARDIS [Suspect]
     Indication: HYPERTENSION
     Dosage: 20MG PER DAY
     Route: 048
     Dates: start: 20041214, end: 20050424
  3. ASPIRIN [Concomitant]
     Indication: CEREBRAL INFARCTION
     Dosage: 100MG PER DAY
     Route: 048
     Dates: start: 20041210
  4. LIPANTIL [Concomitant]
     Dosage: 100MG PER DAY
     Route: 048
     Dates: start: 20050124
  5. GOODMIN [Concomitant]
     Indication: INSOMNIA
     Dosage: .25MG PER DAY
     Route: 048
     Dates: start: 20041214
  6. ALPRAZOLAM [Concomitant]
     Indication: ANXIETY DISORDER
     Dosage: 1.2MG PER DAY
     Route: 048
     Dates: start: 20041227
  7. DEPAKENE [Concomitant]
     Route: 048
  8. CANDESARTAN CILEXETIL [Concomitant]
     Dates: start: 20050425

REACTIONS (5)
  - BLOOD PRESSURE DECREASED [None]
  - EPILEPSY [None]
  - FOAMING AT MOUTH [None]
  - INCONTINENCE [None]
  - MALAISE [None]
